FAERS Safety Report 8408396-0 (Version None)
Quarter: 2012Q2

REPORT INFORMATION
  Report Type: 
  Country: None (occurrence: None)
  Receive Date: 20120604
  Receipt Date: 20120523
  Transmission Date: 20120825
  Serious: Yes (Other)
  Sender: FDA-Public Use
  Company Number: JP-ELI_LILLY_AND_COMPANY-JP201205008695

PATIENT
  Age: 72 Year
  Sex: Male

DRUGS (1)
  1. HUMALOG MIX 50/50 [Suspect]
     Indication: TYPE 2 DIABETES MELLITUS
     Dosage: UNK UNK, TID
     Route: 058

REACTIONS (4)
  - HYPOGLYCAEMIA [None]
  - CEREBRAL INFARCTION [None]
  - HYPERGLYCAEMIA [None]
  - ANTI-INSULIN ANTIBODY POSITIVE [None]
